FAERS Safety Report 12404980 (Version 2)
Quarter: 2016Q2

REPORT INFORMATION
  Report Type: Spontaneous
  Country: GB (occurrence: GB)
  Receive Date: 20160525
  Receipt Date: 20160628
  Transmission Date: 20160815
  Serious: Yes (Other)
  Sender: FDA-Public Use
  Company Number: GB-WATSON-2016-10455

PATIENT
  Age: 15 Year
  Sex: Male

DRUGS (2)
  1. LYMECYCLINE [Concomitant]
     Active Substance: LYMECYCLINE
     Indication: ACNE
     Dosage: 408 MG, UNKNOWN
     Route: 065
     Dates: start: 201409
  2. FLUOXETINE [Suspect]
     Active Substance: FLUOXETINE HYDROCHLORIDE
     Indication: DEPRESSION
     Dosage: 20 MG, DAILY
     Route: 048
     Dates: start: 20160215

REACTIONS (3)
  - Suicide attempt [Unknown]
  - Mood altered [Unknown]
  - Intentional self-injury [Unknown]

NARRATIVE: CASE EVENT DATE: 201603
